FAERS Safety Report 10698031 (Version 4)
Quarter: 2019Q1

REPORT INFORMATION
  Report Type: Spontaneous
  Country: US (occurrence: US)
  Receive Date: 20150108
  Receipt Date: 20190318
  Transmission Date: 20190417
  Serious: No
  Sender: FDA-Public Use
  Company Number: US-PFIZER INC-2015005809

PATIENT
  Age: 65 Year
  Sex: Female
  Weight: 93 kg

DRUGS (22)
  1. LEVEMIR [Concomitant]
     Active Substance: INSULIN DETEMIR
     Indication: DIABETES MELLITUS
     Dosage: 10 MG, 1X/DAY (EVERY NIGHT)
  2. SERTRALINE HCL [Concomitant]
     Active Substance: SERTRALINE HYDROCHLORIDE
     Indication: MENTAL DISORDER
     Dosage: 50 MG, 1X/DAY (PM)
  3. LYRICA [Suspect]
     Active Substance: PREGABALIN
     Indication: PARAPLEGIA
     Dosage: 100 MG, 3X/DAY (AM-MID-PM)
     Route: 048
  4. ASPIRIN (E.C.) [Concomitant]
     Active Substance: ASPIRIN
     Indication: ANTICOAGULANT THERAPY
     Dosage: 8.1 MG, 1X/DAY (AM)
  5. HYDROCHLOROTHIAZIDE. [Concomitant]
     Active Substance: HYDROCHLOROTHIAZIDE
     Indication: URINE OUTPUT DECREASED
     Dosage: 25 MG, 1X/DAY (AM)
  6. PLAVIX [Concomitant]
     Active Substance: CLOPIDOGREL BISULFATE
     Indication: ANTICOAGULANT THERAPY
     Dosage: 75 MG, 1X/DAY (AM)
  7. LYRICA [Suspect]
     Active Substance: PREGABALIN
     Indication: NEUROPATHY PERIPHERAL
  8. RANITIDINE. [Concomitant]
     Active Substance: RANITIDINE
     Indication: GASTROOESOPHAGEAL REFLUX DISEASE
     Dosage: 150 MG, 1X/DAY (PM)
  9. LYRICA [Suspect]
     Active Substance: PREGABALIN
     Indication: DIABETIC NEUROPATHY
     Dosage: 100 MG, 2X/DAY
     Dates: end: 20141206
  10. ALEVE [Concomitant]
     Active Substance: NAPROXEN SODIUM
     Indication: BREAKTHROUGH PAIN
     Dosage: 440 MG, AS NEEDED
  11. METFORMIN [Concomitant]
     Active Substance: METFORMIN HYDROCHLORIDE
     Indication: DIABETES MELLITUS
     Dosage: 1000 MG, 2X/DAY
  12. PROTONIX [Concomitant]
     Active Substance: PANTOPRAZOLE SODIUM
     Indication: GASTROINTESTINAL DISORDER
     Dosage: 40 MG, 1X/DAY (AM)
  13. LYRICA [Suspect]
     Active Substance: PREGABALIN
     Indication: HEREDITARY SPASTIC PARAPLEGIA
  14. METFORMIN [Concomitant]
     Active Substance: METFORMIN HYDROCHLORIDE
     Indication: TYPE 2 DIABETES MELLITUS
     Dosage: 100 MG, 2X/DAY (AM-PM)
  15. LEVEMIR [Concomitant]
     Active Substance: INSULIN DETEMIR
     Indication: TYPE 2 DIABETES MELLITUS
     Dosage: UNK, 1X/DAY (LEVEMIR I 00 UNIT/ML FLEXTOUCH 3 ML 1 X DAY)
  16. SYNTHROID [Concomitant]
     Active Substance: LEVOTHYROXINE SODIUM
     Indication: THYROID DISORDER
     Dosage: 75 UG, 1X/DAY (AM)
  17. SOMA [Concomitant]
     Active Substance: CARISOPRODOL
     Indication: NEUROPATHY PERIPHERAL
     Dosage: 350 MG, 1X/DAY (PM)
  18. COLACE [Concomitant]
     Active Substance: DOCUSATE SODIUM
     Indication: FAECES HARD
     Dosage: 100 MG, 3X/DAY (AM-MID-PM)
  19. SIMVASTATIN. [Concomitant]
     Active Substance: SIMVASTATIN
     Indication: BLOOD CHOLESTEROL
     Dosage: 20 MG, 1X/DAY (AM)
  20. IRON FERROUS SULFATE [Concomitant]
     Indication: ANAEMIA
     Dosage: 325 MG, 3X/DAY (AM-MID-PM)
  21. EXALGO [Concomitant]
     Active Substance: HYDROMORPHONE HYDROCHLORIDE
     Indication: PAIN
     Dosage: 12 MG, 1X/DAY (AM)
  22. PENNSAID [Concomitant]
     Active Substance: DICLOFENAC SODIUM
     Indication: PAIN
     Dosage: UNK, AS NEEDED (RUB 30-40 DROPS ONTO PAINFUL AREA)

REACTIONS (2)
  - Pain in extremity [Not Recovered/Not Resolved]
  - Pain [Not Recovered/Not Resolved]

NARRATIVE: CASE EVENT DATE: 20141223
